FAERS Safety Report 15167635 (Version 2)
Quarter: 2018Q3

REPORT INFORMATION
  Report Type: Spontaneous
  Country: US (occurrence: US)
  Receive Date: 20180719
  Receipt Date: 20180723
  Transmission Date: 20181010
  Serious: Yes (Hospitalization, Other)
  Sender: FDA-Public Use
  Company Number: US-SHIRE-US201826406

PATIENT
  Age: 19 Year
  Sex: Male
  Weight: 51.7 kg

DRUGS (1)
  1. ELAPRASE [Suspect]
     Active Substance: IDURSULFASE
     Indication: MUCOPOLYSACCHARIDOSIS II
     Dosage: 30 MG, 1X/WEEK
     Route: 042
     Dates: start: 20070201

REACTIONS (3)
  - Respiratory distress [Recovered/Resolved]
  - Excessive granulation tissue [Recovered/Resolved]
  - Tracheal disorder [Recovered/Resolved]

NARRATIVE: CASE EVENT DATE: 20180501
